FAERS Safety Report 4957651-5 (Version None)
Quarter: 2006Q1

REPORT INFORMATION
  Report Type: 
  Country: None (occurrence: None)
  Receive Date: 20060324
  Receipt Date: 20060308
  Transmission Date: 20060701
  Serious: Yes (Hospitalization, Other)
  Sender: FDA-Public Use
  Company Number: US200603002188

PATIENT
  Age: 89 Year
  Sex: Female

DRUGS (2)
  1. FORTEO [Suspect]
     Indication: OSTEOPOROSIS
     Dates: start: 20050801, end: 20060105
  2. FORTEO [Concomitant]

REACTIONS (5)
  - ARTHRALGIA [None]
  - PHARMACEUTICAL PRODUCT COMPLAINT [None]
  - SINUS HEADACHE [None]
  - STREPTOCOCCAL INFECTION [None]
  - WALKING AID USER [None]
